FAERS Safety Report 6733033-0 (Version None)
Quarter: 2010Q2

REPORT INFORMATION
  Report Type: 
  Country: None (occurrence: None)
  Receive Date: 20100517
  Receipt Date: 20100504
  Transmission Date: 20101027
  Serious: Yes (Hospitalization)
  Sender: FDA-Public Use
  Company Number: 056-20484-10020006

PATIENT
  Age: 77 Year
  Sex: Female
  Weight: 100 kg

DRUGS (6)
  1. INNOHEP [Suspect]
     Indication: THROMBOPHLEBITIS
     Dosage: 14000 IU, SUBCUTANEOUS
     Route: 058
     Dates: start: 20091110, end: 20091208
  2. COUMADIN [Suspect]
     Indication: THROMBOPHLEBITIS
     Dosage: 2 MG ORAL
     Route: 048
     Dates: start: 20091110, end: 20091208
  3. PRETERAX (INDAPAMIDE, PERINDOPRIL ERBUMINE) [Concomitant]
  4. INOPOMP (PANTOPRAZOLE) [Concomitant]
  5. TARDYFERON (FERROUS) [Concomitant]
  6. LYRICA [Concomitant]

REACTIONS (20)
  - ABDOMINAL WALL HAEMATOMA [None]
  - BACTERIAL TEST POSITIVE [None]
  - FISTULA [None]
  - GASTRIC ULCER [None]
  - HAEMODYNAMIC INSTABILITY [None]
  - HAEMORRHAGIC ANAEMIA [None]
  - HEART RATE DECREASED [None]
  - HYPOPERFUSION [None]
  - HYPOTENSION [None]
  - INTERNATIONAL NORMALISED RATIO INCREASED [None]
  - LARYNGEAL DYSPNOEA [None]
  - MALAISE [None]
  - MORGANELLA TEST POSITIVE [None]
  - OEDEMA [None]
  - OESOPHAGEAL ULCER [None]
  - OVERDOSE [None]
  - PATHOGEN RESISTANCE [None]
  - SHOCK HAEMORRHAGIC [None]
  - SOMNOLENCE [None]
  - VASOCONSTRICTION [None]
